FAERS Safety Report 5230935-1 (Version None)
Quarter: 2007Q1

REPORT INFORMATION
  Report Type: 
  Country: None (occurrence: None)
  Receive Date: 20070206
  Receipt Date: 20070131
  Transmission Date: 20070707
  Serious: Yes (Other)
  Sender: FDA-Public Use
  Company Number: GB-GLAXOSMITHKLINE-B0360423A

PATIENT
  Sex: Female

DRUGS (6)
  1. PAROXETINE HYDROCHLORIDE [Suspect]
     Route: 065
  2. CHLORPROMAZINE [Concomitant]
     Route: 065
  3. DIAZEPAM [Concomitant]
     Route: 065
  4. VITAMIN B-12 [Concomitant]
     Route: 042
  5. STELAZINE [Concomitant]
     Route: 065
  6. AMISULPRIDE [Concomitant]
     Route: 065

REACTIONS (12)
  - AGITATION [None]
  - DEPRESSED MOOD [None]
  - DIZZINESS [None]
  - DRUG WITHDRAWAL SYNDROME [None]
  - EMOTIONAL DISTRESS [None]
  - FATIGUE [None]
  - INSOMNIA [None]
  - LETHARGY [None]
  - MALAISE [None]
  - NERVOUSNESS [None]
  - SLEEP DISORDER [None]
  - SUICIDAL IDEATION [None]
